FAERS Safety Report 10211563 (Version 1)
Quarter: 2014Q2

REPORT INFORMATION
  Report Type: Spontaneous
  Country: DE (occurrence: GB)
  Receive Date: 20140602
  Receipt Date: 20140602
  Transmission Date: 20141212
  Serious: Yes (Other)
  Sender: FDA-Public Use
  Company Number: GB-FRI-1000067778

PATIENT
  Age: 82 Year
  Sex: Male
  Weight: 63 kg

DRUGS (12)
  1. MEMANTINE [Suspect]
     Route: 048
     Dates: start: 20140225
  2. BUMETANIDE [Concomitant]
     Dates: start: 20140120, end: 20140317
  3. CALCICHEW D3 [Concomitant]
     Dates: start: 20140120, end: 20140317
  4. CANDESARTAN [Concomitant]
     Dates: start: 20140120, end: 20140317
  5. CARBOCISTEINE [Concomitant]
     Dates: start: 20140120, end: 20140319
  6. OXYTETRACYCLINE [Concomitant]
     Dates: start: 20140120, end: 20140317
  7. PREDNISOLONE [Concomitant]
     Dates: start: 20140120, end: 20140317
  8. RIVAROXABAN [Concomitant]
     Dates: start: 20140221, end: 20140325
  9. SALBUTAMOL [Concomitant]
     Dates: start: 20140120, end: 20140217
  10. SALMETEROL [Concomitant]
     Dates: start: 20140120, end: 20140219
  11. SIMVASTATIN [Concomitant]
     Dates: start: 20140120, end: 20140317
  12. TIOTROPIUM [Concomitant]
     Dates: start: 20140120, end: 20140217

REACTIONS (3)
  - Hypotension [Recovered/Resolved]
  - Dizziness [Recovered/Resolved]
  - Malaise [Recovered/Resolved]
